FAERS Safety Report 7604639-1 (Version None)
Quarter: 2011Q3

REPORT INFORMATION
  Report Type: 
  Country: None (occurrence: None)
  Receive Date: 20110712
  Receipt Date: 20110628
  Transmission Date: 20111222
  Serious: Yes (Death)
  Sender: FDA-Public Use
  Company Number: US-PFIZER INC-2008153488

PATIENT
  Age: 69 Year
  Sex: Male

DRUGS (14)
  1. ATORVASTATIN CALCIUM [Suspect]
     Dosage: UNK
     Route: 048
     Dates: end: 20070101
  2. EZETIMIBE [Suspect]
     Dosage: UNK
     Route: 048
     Dates: end: 20070101
  3. LISINOPRIL [Suspect]
     Dosage: UNK
     Route: 048
     Dates: end: 20070101
  4. RANITIDINE [Suspect]
     Dosage: UNK
     Route: 048
     Dates: end: 20070101
  5. TIAGABINE HCL [Suspect]
     Dosage: UNK
     Route: 048
     Dates: end: 20070101
  6. PHENYTOIN [Suspect]
     Dosage: UNK
     Route: 048
     Dates: end: 20070101
  7. LORAZEPAM [Suspect]
     Dosage: UNK
     Route: 048
     Dates: end: 20070101
  8. DIURETICS [Suspect]
     Dosage: UNK
     Route: 048
     Dates: end: 20070101
  9. CLOPIDOGREL [Suspect]
     Dosage: UNK
     Route: 048
     Dates: end: 20070101
  10. AMLODIPINE BESYLATE [Suspect]
     Dosage: UNK
     Route: 048
     Dates: end: 20070101
  11. METOPROLOL SUCCINATE [Suspect]
     Dosage: UNK
     Route: 048
     Dates: end: 20070101
  12. SALICYLATES [Suspect]
     Dosage: UNK
     Route: 048
     Dates: end: 20070101
  13. CLONIDINE [Suspect]
     Dosage: UNK
     Route: 048
     Dates: end: 20070101
  14. ALBUTEROL SULFATE AUTOHALER [Suspect]
     Dosage: UNK
     Route: 048
     Dates: end: 20070101

REACTIONS (1)
  - COMPLETED SUICIDE [None]
